FAERS Safety Report 9723290 (Version 2)
Quarter: 2014Q1

REPORT INFORMATION
  Report Type: Spontaneous
  Country: JP (occurrence: JP)
  Receive Date: 20131202
  Receipt Date: 20140114
  Transmission Date: 20141002
  Serious: Yes (Other)
  Sender: FDA-Public Use
  Company Number: JP-OTSUKA-JP-2013-15665

PATIENT
  Age: 80 Year
  Sex: Female

DRUGS (1)
  1. SAMSCA [Suspect]
     Indication: CARDIAC FAILURE
     Dosage: UNK
     Route: 048

REACTIONS (1)
  - Interstitial lung disease [Unknown]
